FAERS Safety Report 5657901-6 (Version None)
Quarter: 2008Q1

REPORT INFORMATION
  Report Type: 
  Country: None (occurrence: None)
  Receive Date: 20080310
  Receipt Date: 20080226
  Transmission Date: 20080703
  Serious: Yes (Disabling)
  Sender: FDA-Public Use
  Company Number: PHRM2008FR00990

PATIENT
  Age: 60 Year
  Sex: Female

DRUGS (1)
  1. COTAREG [Suspect]
     Indication: HYPERTENSION
     Dosage: 1 DF, QD
     Route: 048
     Dates: start: 20010101

REACTIONS (1)
  - AGEUSIA [None]
